FAERS Safety Report 5130040-9 (Version None)
Quarter: 2006Q4

REPORT INFORMATION
  Report Type: 
  Country: None (occurrence: None)
  Receive Date: 20061018
  Receipt Date: 20061004
  Transmission Date: 20070319
  Serious: Yes (Other)
  Sender: FDA-Public Use
  Company Number: JP-MERCK-0610USA04410

PATIENT
  Age: 62 Year
  Sex: Male

DRUGS (2)
  1. PEPCID [Suspect]
     Route: 048
     Dates: start: 20050901
  2. PANALDINE [Suspect]
     Route: 048
     Dates: start: 20050901, end: 20051101

REACTIONS (1)
  - LIVER DISORDER [None]
